FAERS Safety Report 12997785 (Version 1)
Quarter: 2016Q4

REPORT INFORMATION
  Report Type: Spontaneous
  Country: FR (occurrence: FR)
  Receive Date: 20161205
  Receipt Date: 20161205
  Transmission Date: 20170207
  Serious: Yes (Other)
  Sender: FDA-Public Use
  Company Number: PHHY2016FR165918

PATIENT
  Age: 64 Year
  Sex: Female
  Weight: 55 kg

DRUGS (7)
  1. ZOMETA [Suspect]
     Active Substance: ZOLEDRONIC ACID
     Indication: OSTEOPOROSIS PROPHYLAXIS
     Dosage: 4 MG, UNK
     Route: 042
     Dates: start: 201111, end: 201205
  2. ALIMTA [Suspect]
     Active Substance: PEMETREXED DISODIUM
     Indication: LUNG ADENOCARCINOMA METASTATIC
     Dosage: 820 MG, QD
     Route: 042
     Dates: start: 20111109
  3. AVASTIN [Suspect]
     Active Substance: BEVACIZUMAB
     Indication: LUNG ADENOCARCINOMA METASTATIC
     Dosage: 412.5 MG, QD
     Route: 042
     Dates: start: 20111109
  4. CISPLATIN. [Suspect]
     Active Substance: CISPLATIN
     Indication: LUNG ADENOCARCINOMA METASTATIC
     Dosage: 123 MG, QD
     Route: 042
     Dates: start: 20111109
  5. CISPLATIN. [Suspect]
     Active Substance: CISPLATIN
     Dosage: 123 MG, QD
     Route: 042
     Dates: start: 20120309
  6. ALIMTA [Suspect]
     Active Substance: PEMETREXED DISODIUM
     Dosage: 820 MG, QD
     Route: 042
     Dates: start: 20120309
  7. AVASTIN [Suspect]
     Active Substance: BEVACIZUMAB
     Dosage: 412.5 MG, QD
     Route: 042
     Dates: start: 20120309

REACTIONS (2)
  - Osteonecrosis of jaw [Unknown]
  - Product use issue [Unknown]

NARRATIVE: CASE EVENT DATE: 201111
